FAERS Safety Report 18068049 (Version 1)
Quarter: 2020Q3

REPORT INFORMATION
  Report Type: Spontaneous
  Country: US (occurrence: US)
  Receive Date: 20200724
  Receipt Date: 20200724
  Transmission Date: 20201103
  Serious: Yes (Hospitalization)
  Sender: FDA-Public Use
  Company Number: US-BRISTOL-MYERS SQUIBB COMPANY-BMS-2020-056539

PATIENT
  Age: 91 Year
  Sex: Female

DRUGS (4)
  1. COUMADIN [Suspect]
     Active Substance: WARFARIN SODIUM
     Indication: HEART VALVE REPLACEMENT
     Dosage: 5 MILLIGRAM, QD
     Route: 048
     Dates: start: 1995
  2. COUMADIN [Suspect]
     Active Substance: WARFARIN SODIUM
     Dosage: 2.5 MILLIGRAM, BID
     Route: 048
     Dates: end: 20200703
  3. AMLODIPINE [Concomitant]
     Active Substance: AMLODIPINE BESYLATE
     Indication: PRODUCT USED FOR UNKNOWN INDICATION
     Dosage: UNK
     Route: 065
  4. LISINOPRIL. [Concomitant]
     Active Substance: LISINOPRIL
     Indication: PRODUCT USED FOR UNKNOWN INDICATION
     Dosage: UNK
     Route: 065

REACTIONS (9)
  - Feeling abnormal [Recovered/Resolved]
  - Illness [Recovered/Resolved]
  - International normalised ratio decreased [Unknown]
  - Product use complaint [Recovered/Resolved]
  - Insomnia [Recovered/Resolved]
  - Haemoglobin decreased [Recovered/Resolved]
  - Product taste abnormal [Recovered/Resolved]
  - Head discomfort [Recovered/Resolved]
  - Product solubility abnormal [Recovered/Resolved]

NARRATIVE: CASE EVENT DATE: 2020
